FAERS Safety Report 5880057-1 (Version None)
Quarter: 2008Q3

REPORT INFORMATION
  Report Type: 
  Country: None (occurrence: None)
  Receive Date: 20080912
  Receipt Date: 20080902
  Transmission Date: 20090109
  Serious: Yes (Other)
  Sender: FDA-Public Use
  Company Number: DE-PFIZER INC-2008067034

PATIENT
  Sex: Female
  Weight: 50 kg

DRUGS (6)
  1. LYRICA [Suspect]
     Indication: PAIN IN EXTREMITY
     Route: 048
     Dates: start: 20070301, end: 20080801
  2. MORPHINE [Concomitant]
  3. ANTI-PARKINSON AGENTS [Concomitant]
  4. L-DOPA [Concomitant]
  5. ROTIGOTINE [Concomitant]
  6. FENTANYL [Concomitant]
     Route: 062

REACTIONS (14)
  - ABNORMAL DREAMS [None]
  - ANOREXIA [None]
  - ARTHRALGIA [None]
  - DRUG INEFFECTIVE [None]
  - EYE MOVEMENT DISORDER [None]
  - FALL [None]
  - FLUID RETENTION [None]
  - HYPERHIDROSIS [None]
  - HYPOAESTHESIA [None]
  - MUSCLE SPASMS [None]
  - MYALGIA [None]
  - PAIN [None]
  - PERIPHERAL COLDNESS [None]
  - SYNCOPE [None]
